FAERS Safety Report 12570268 (Version 1)
Quarter: 2016Q3

REPORT INFORMATION
  Report Type: Spontaneous
  Country: US (occurrence: None)
  Receive Date: 20160718
  Receipt Date: 20160718
  Transmission Date: 20161109
  Serious: No
  Sender: FDA-Public Use
  Company Number: None

PATIENT
  Age: 54 Year
  Sex: Female
  Weight: 63.5 kg

DRUGS (7)
  1. CURCUMIN [Concomitant]
     Active Substance: CURCUMIN
  2. FISH OIL [Concomitant]
     Active Substance: FISH OIL
  3. SOOLANTRA [Suspect]
     Active Substance: IVERMECTIN
     Indication: ROSACEA
     Dosage: IN THE MORNING APPLIED TO A SURFACE, USUALLY THE SKIN
     Route: 061
     Dates: start: 20160520, end: 20160527
  4. MULTI-VITAMIN [Concomitant]
     Active Substance: .ALPHA.-TOCOPHEROL ACETATE, DL-\ASCORBIC ACID\CYANOCOBALAMIN\FLUORIDE ION\FOLIC ACID\NIACIN\PYRIDOXINE\RIBOFLAVIN\THIAMINE\VITAMIN A\VITAMIN D
  5. CALCIUM [Concomitant]
     Active Substance: CALCIUM
  6. VITAMIN C WITH BIOFLAVINS [Concomitant]
  7. PYCNOGENOL [Concomitant]
     Active Substance: DIETARY SUPPLEMENT

REACTIONS (4)
  - Burning sensation [None]
  - Erythema [None]
  - Skin disorder [None]
  - Facial pain [None]

NARRATIVE: CASE EVENT DATE: 20160520
